FAERS Safety Report 9419737 (Version 1)
Quarter: 2013Q3

REPORT INFORMATION
  Report Type: Spontaneous
  Country: FR (occurrence: None)
  Receive Date: 20130723
  Receipt Date: 20130723
  Transmission Date: 20140515
  Serious: Yes (Other)
  Sender: FDA-Public Use
  Company Number: DSM-2013-00659

PATIENT
  Age: 65 Year
  Sex: Female

DRUGS (1)
  1. OLMETEC [Suspect]
     Indication: HYPERTENSION
     Route: 048
     Dates: start: 200805, end: 201107

REACTIONS (22)
  - Autoimmune disorder [None]
  - Diarrhoea [None]
  - Weight decreased [None]
  - Malnutrition [None]
  - Intestinal villi atrophy [None]
  - Electrolyte imbalance [None]
  - Hypokalaemia [None]
  - Renal failure [None]
  - Acidosis [None]
  - Tuberculosis [None]
  - Malnutrition [None]
  - Inflammation [None]
  - Tremor [None]
  - Hyperhidrosis [None]
  - Vomiting [None]
  - Device related infection [None]
  - Thrombophlebitis septic [None]
  - Pulmonary oedema [None]
  - Thrombosis in device [None]
  - Hypovolaemia [None]
  - Acarodermatitis [None]
  - Malabsorption [None]
